FAERS Safety Report 7385026-0 (Version None)
Quarter: 2011Q1

REPORT INFORMATION
  Report Type: 
  Country: None (occurrence: None)
  Receive Date: 20110330
  Receipt Date: 20110322
  Transmission Date: 20110831
  Serious: Yes (Hospitalization)
  Sender: FDA-Public Use
  Company Number: DE-ELI_LILLY_AND_COMPANY-DE201103007102

PATIENT
  Sex: Male
  Weight: 77 kg

DRUGS (3)
  1. PEMETREXED [Suspect]
     Dosage: 990
     Dates: start: 20101230
  2. CISPLATIN [Suspect]
     Dosage: 149
     Dates: start: 20101230
  3. NECITUMUMAB (11F8) (LY3012211) [Suspect]
     Dosage: 800
     Dates: start: 20101230

REACTIONS (1)
  - DUODENAL ULCER [None]
